FAERS Safety Report 8769760 (Version 1)
Quarter: 2012Q4

REPORT INFORMATION
  Report Type: 
  Country: CN (occurrence: CN)
  Receive Date: 20120905
  Receipt Date: 20120905
  Transmission Date: 20130627
  Serious: Yes (Other)
  Sender: FDA-Public Use
  Company Number: CN-ASTRAZENECA-2012SE64842

PATIENT
  Sex: Female

DRUGS (4)
  1. NEXIUM [Suspect]
     Indication: POST PROCEDURAL HAEMORRHAGE
     Route: 042
     Dates: start: 20120715, end: 20120730
  2. NEXIUM [Suspect]
     Indication: POST PROCEDURAL HAEMORRHAGE
     Route: 048
     Dates: start: 20120801, end: 20120829
  3. LOPERAMIDE [Concomitant]
     Indication: PERISTALSIS VISIBLE
     Dosage: STANDARD DOSE
     Route: 048
     Dates: start: 20120715, end: 20120829
  4. CREON [Concomitant]
     Indication: DYSPEPSIA
     Dosage: 2-4 TABLETS THREE TIMES A DAY
     Route: 048
     Dates: start: 20120701, end: 20120828

REACTIONS (5)
  - Pancreatic carcinoma [Unknown]
  - Visual acuity reduced [Not Recovered/Not Resolved]
  - Gastrointestinal oedema [Unknown]
  - Stress ulcer [Unknown]
  - Vision blurred [Unknown]
